FAERS Safety Report 4876105-8 (Version None)
Quarter: 2006Q1

REPORT INFORMATION
  Report Type: 
  Country: None (occurrence: None)
  Receive Date: 20060106
  Receipt Date: 20060106
  Transmission Date: 20060701
  Serious: Yes (Life-Threatening, Disabling)
  Sender: FDA-Public Use
  Company Number: None

PATIENT
  Sex: Female
  Weight: 87 kg

DRUGS (13)
  1. CETACAINE TOPICAL SPRAY [Suspect]
     Indication: ECHOCARDIOGRAM
     Dosage: ONE TIME TOP
     Route: 061
     Dates: start: 20051028, end: 20051028
  2. CETACAINE TOPICAL SPRAY [Suspect]
     Indication: LOCAL ANAESTHESIA
     Dosage: ONE TIME TOP
     Route: 061
     Dates: start: 20051028, end: 20051028
  3. CLINDAMYCIN [Concomitant]
  4. HEPARIN [Concomitant]
  5. ENALAPRILAT [Concomitant]
  6. FUROSEMIDE [Concomitant]
  7. METOCLOPRAMIDE [Concomitant]
  8. NOVOLOG [Concomitant]
  9. BACITRACIN [Concomitant]
  10. NYSTATIN [Concomitant]
  11. ONDANSETRON [Concomitant]
  12. MIDAZOLAM [Concomitant]
  13. MEPERIDINE HCL [Concomitant]

REACTIONS (1)
  - METHAEMOGLOBINAEMIA [None]
